FAERS Safety Report 5226943-7 (Version None)
Quarter: 2007Q1

REPORT INFORMATION
  Report Type: 
  Country: None (occurrence: None)
  Receive Date: 20070201
  Receipt Date: 20070201
  Transmission Date: 20070707
  Serious: Yes (Other)
  Sender: FDA-Public Use
  Company Number: None

PATIENT
  Sex: Female
  Weight: 74.8435 kg

DRUGS (1)
  1. SERTRALINE HYDROCHLORIDE [Suspect]
     Indication: DEPRESSION
     Dosage: 200MG QAM PO
     Route: 048
     Dates: start: 20060801, end: 20060901

REACTIONS (7)
  - ABNORMAL DREAMS [None]
  - DIARRHOEA [None]
  - DIZZINESS [None]
  - DYSGEUSIA [None]
  - HYPERSOMNIA [None]
  - STOMACH DISCOMFORT [None]
  - VOMITING [None]
